FAERS Safety Report 22256559 (Version 2)
Quarter: 2023Q2

REPORT INFORMATION
  Report Type: Spontaneous
  Country: LT (occurrence: LT)
  Receive Date: 20230426
  Receipt Date: 20230511
  Transmission Date: 20230722
  Serious: No
  Sender: FDA-Public Use
  Company Number: LT-Orion Corporation ORION PHARMA-ESCI2023-0003

PATIENT
  Age: 30 Year
  Sex: Female

DRUGS (37)
  1. LORAZEPAM [Suspect]
     Active Substance: LORAZEPAM
     Indication: Anxiety
     Dosage: UPTO 3 TIMES
     Route: 065
  2. SODIUM CHLORIDE [Suspect]
     Active Substance: SODIUM CHLORIDE
     Indication: Product used for unknown indication
     Route: 065
  3. ESCITALOPRAM [Suspect]
     Active Substance: ESCITALOPRAM OXALATE
     Indication: Anxiety
     Route: 065
     Dates: start: 2018
  4. ESCITALOPRAM [Suspect]
     Active Substance: ESCITALOPRAM OXALATE
     Indication: Depressed mood
     Dosage: GRADUALLY REDUCE THE DOSE 15 TO 10 MG/DAY
     Route: 065
  5. ESCITALOPRAM [Suspect]
     Active Substance: ESCITALOPRAM OXALATE
     Indication: Sleep disorder
  6. AMLODIPINE [Suspect]
     Active Substance: AMLODIPINE BESYLATE
     Indication: Hypertension
     Route: 065
  7. DIAZEPAM [Suspect]
     Active Substance: DIAZEPAM
     Indication: Sleep disorder
     Route: 065
     Dates: start: 2018
  8. DIAZEPAM [Suspect]
     Active Substance: DIAZEPAM
     Indication: Depressed mood
  9. DIAZEPAM [Suspect]
     Active Substance: DIAZEPAM
     Indication: Anxiety
  10. PAROXETINE [Suspect]
     Active Substance: PAROXETINE
     Indication: Sleep disorder
     Route: 065
     Dates: start: 2018
  11. PAROXETINE [Suspect]
     Active Substance: PAROXETINE
     Indication: Anxiety
  12. PAROXETINE [Suspect]
     Active Substance: PAROXETINE
     Indication: Depressed mood
  13. HALOPERIDOL [Suspect]
     Active Substance: HALOPERIDOL
     Indication: Mood altered
     Dosage: INJECTION SOLUTION
     Route: 030
  14. HALOPERIDOL [Suspect]
     Active Substance: HALOPERIDOL
     Indication: Anxiety
  15. HALOPERIDOL [Suspect]
     Active Substance: HALOPERIDOL
     Indication: Irritability
  16. HALOPERIDOL [Suspect]
     Active Substance: HALOPERIDOL
     Indication: Affect lability
  17. SULPIRIDE [Suspect]
     Active Substance: SULPIRIDE
     Indication: Sleep disorder
     Route: 065
     Dates: start: 2018
  18. SULPIRIDE [Suspect]
     Active Substance: SULPIRIDE
     Indication: Anxiety
  19. SULPIRIDE [Suspect]
     Active Substance: SULPIRIDE
     Indication: Depressed mood
  20. DEXTROSE [Suspect]
     Active Substance: DEXTROSE\DEXTROSE MONOHYDRATE
     Indication: Product used for unknown indication
     Route: 065
  21. DEXTROSE [Suspect]
     Active Substance: DEXTROSE\DEXTROSE MONOHYDRATE
     Dosage: 5 PERCENT
     Route: 042
  22. INSULIN GLARGINE [Suspect]
     Active Substance: INSULIN GLARGINE
     Indication: Type 1 diabetes mellitus
     Dosage: 26 INTERNATIONAL UNITS, INSULIN LANTUS
     Route: 065
  23. INSULIN GLARGINE [Suspect]
     Active Substance: INSULIN GLARGINE
     Dosage: 23 ACTION UNITS
     Route: 065
  24. INSULIN NOS [Suspect]
     Active Substance: INSULIN NOS
     Indication: Hyperglycaemia
     Dosage: 3 INTERNATIONAL UNITS
     Route: 065
  25. INSULIN NOS [Suspect]
     Active Substance: INSULIN NOS
     Dosage: 5 INTERNATIONAL UNITS OF INSULIN
     Route: 065
  26. INSULIN NOS [Suspect]
     Active Substance: INSULIN NOS
     Dosage: SINGLE
     Route: 058
  27. INSULIN ASPART [Suspect]
     Active Substance: INSULIN ASPART
     Indication: Type 1 diabetes mellitus
     Dosage: 6 INTERNATIONAL UNITS, INSULIN FIASP
     Route: 065
  28. INSULIN ASPART [Suspect]
     Active Substance: INSULIN ASPART
     Dosage: 4 INTERNATIONAL UNITS
     Route: 065
  29. ONDANSETRON [Suspect]
     Active Substance: ONDANSETRON
     Indication: Vomiting
     Dosage: 4 MG/2 ML INTRAVENOUSLY
     Route: 042
  30. ONDANSETRON [Suspect]
     Active Substance: ONDANSETRON
     Route: 042
  31. METOCLOPRAMIDE [Suspect]
     Active Substance: METOCLOPRAMIDE
     Indication: Vomiting
     Route: 042
  32. POTASSIUM CHLORIDE [Suspect]
     Active Substance: POTASSIUM CHLORIDE
     Indication: Hypokalaemia
     Route: 042
  33. TIAPRIDE [Suspect]
     Active Substance: TIAPRIDE
     Indication: Anxiety
     Dosage: UP TO 300 MG
     Route: 065
     Dates: start: 2018
  34. TIAPRIDE [Suspect]
     Active Substance: TIAPRIDE
     Indication: Sleep disorder
  35. TIAPRIDE [Suspect]
     Active Substance: TIAPRIDE
     Indication: Depressed mood
  36. BISOPROLOL [Suspect]
     Active Substance: BISOPROLOL
     Indication: Hypertension
     Route: 065
  37. DIETARY SUPPLEMENT [Suspect]
     Active Substance: DIETARY SUPPLEMENT
     Indication: Supplementation therapy
     Dosage: 1 BOTTLE PER DAY
     Route: 065

REACTIONS (1)
  - Maternal exposure during pregnancy [Unknown]
